FAERS Safety Report 25365343 (Version 2)
Quarter: 2025Q2

REPORT INFORMATION
  Report Type: Spontaneous
  Country: US (occurrence: US)
  Receive Date: 20250527
  Receipt Date: 20250626
  Transmission Date: 20250716
  Serious: Yes (Other)
  Sender: SANOFI AVENTIS
  Company Number: US-SA-2025SA150816

PATIENT
  Age: 28 Year
  Sex: Female

DRUGS (3)
  1. DUPIXENT [Suspect]
     Active Substance: DUPILUMAB
     Indication: Asthma
     Dosage: 300 MG, QOW
     Route: 058
     Dates: start: 20250501, end: 20250501
  2. DUPIXENT [Suspect]
     Active Substance: DUPILUMAB
     Indication: Mast cell activation syndrome
  3. CYCLOSPORINE [Suspect]
     Active Substance: CYCLOSPORINE

REACTIONS (3)
  - Anaphylactic reaction [Unknown]
  - Product use in unapproved indication [Unknown]
  - Incorrect dose administered [Unknown]

NARRATIVE: CASE EVENT DATE: 20250501
